FAERS Safety Report 13381856 (Version 1)
Quarter: 2017Q1

REPORT INFORMATION
  Report Type: Spontaneous
  Country: US (occurrence: US)
  Receive Date: 20170329
  Receipt Date: 20170329
  Transmission Date: 20170429
  Serious: No
  Sender: FDA-Public Use
  Company Number: US-ELI_LILLY_AND_COMPANY-US201608003884

PATIENT
  Sex: Female
  Weight: 69 kg

DRUGS (2)
  1. CYMBALTA [Suspect]
     Active Substance: DULOXETINE HYDROCHLORIDE
     Indication: PRODUCT USED FOR UNKNOWN INDICATION
     Dosage: 60 MG, QD
     Route: 048
  2. CYMBALTA [Suspect]
     Active Substance: DULOXETINE HYDROCHLORIDE
     Dosage: 60 MG, QD
     Route: 048
     Dates: start: 20130829

REACTIONS (13)
  - Drug withdrawal syndrome [Unknown]
  - Irritability [Unknown]
  - Dyspnoea [Unknown]
  - Paraesthesia [Unknown]
  - Dysgeusia [Unknown]
  - Fatigue [Unknown]
  - Palpitations [Unknown]
  - Hyposmia [Unknown]
  - Anxiety [Unknown]
  - Hyperhidrosis [Unknown]
  - Panic attack [Unknown]
  - Hot flush [Unknown]
  - Crying [Unknown]
